FAERS Safety Report 7520278-5 (Version None)
Quarter: 2011Q2

REPORT INFORMATION
  Report Type: 
  Country: None (occurrence: None)
  Receive Date: 20110602
  Receipt Date: 20110517
  Transmission Date: 20111010
  Serious: Yes (Death, Life-Threatening, Hospitalization, Other)
  Sender: FDA-Public Use
  Company Number: US-ACTELION-A-US2011-46046

PATIENT

DRUGS (50)
  1. EPOPROSTENOL SODIUM [Suspect]
     Dosage: 5.5 NG/KG, PER MIN
     Route: 042
     Dates: start: 20110312, end: 20110317
  2. ASPIRIN [Concomitant]
  3. PLAVIX [Concomitant]
  4. INSULIN [Concomitant]
  5. PREVACID [Concomitant]
  6. FUROSEMIDE [Concomitant]
  7. TEMAZEPAM [Concomitant]
  8. OMEPRAZOLE [Concomitant]
  9. POTASSIUM CHLORIDE [Concomitant]
  10. NOREPINEPHRINE BITARTRATE [Concomitant]
  11. SPIRONOLACTONE [Concomitant]
  12. ETOMIDATE [Concomitant]
  13. ENALAPRIL MALEATE AND HYDROCHLOROTHIAZIDE [Concomitant]
  14. PROVIGIL [Concomitant]
  15. SODIUM BICARBONATE [Concomitant]
  16. DEXTROSE [Concomitant]
  17. FRESH FROZEN PLASMA [Concomitant]
  18. HEPARIN [Concomitant]
  19. OXYGEN [Concomitant]
  20. ISOSORBIDE DINITRATE [Concomitant]
  21. OXYCODONE HCL [Concomitant]
  22. EPOPROSTENOL SODIUM [Suspect]
     Indication: PULMONARY ARTERIAL HYPERTENSION
     Dosage: 4.5 NG/KG, PER MIN
     Route: 042
     Dates: start: 20110305
  23. VITAMIN E [Concomitant]
  24. FISH OIL [Concomitant]
  25. PRAVASTATIN [Concomitant]
  26. LACTULOSE [Concomitant]
  27. EPINEPHRINE [Concomitant]
  28. VASOPRESSIN [Concomitant]
  29. DOBUTAMINE HYDROCHLORIDE [Concomitant]
  30. EPOPROSTENOL SODIUM [Suspect]
     Dosage: 5.5 NG/KG, PER MIN
     Route: 042
     Dates: start: 20110302
  31. NAFCILLIN [Suspect]
  32. JANUVIA [Concomitant]
  33. WARFARIN SODIUM [Concomitant]
  34. VANCOMYCIN [Concomitant]
  35. PHYTONADIONE [Concomitant]
  36. SUCCINYLCHOLINE CHLORIDE [Concomitant]
  37. GLIPIZIDE [Concomitant]
  38. ACETAMINOPHEN [Concomitant]
  39. PIPERACILLIN [Concomitant]
  40. POTASSIUM PHOSPHATE DIBASIC [Concomitant]
  41. SODIUM CHLORIDE [Concomitant]
  42. LORAZEPAM [Concomitant]
  43. CALCIUM CHLORIDE [Concomitant]
  44. FENTANYL [Concomitant]
  45. TRACLEER [Suspect]
     Indication: PULMONARY ARTERIAL HYPERTENSION
     Dosage: UNK
     Route: 048
     Dates: start: 20100101, end: 20110315
  46. PROTRIPTYLINE [Concomitant]
  47. MAGNESIUM HYDROXIDE [Concomitant]
  48. CEFAZOLIN [Concomitant]
  49. ATROPINE [Concomitant]
  50. MIDAZOLAM HCL [Concomitant]

REACTIONS (32)
  - COAGULOPATHY [None]
  - BRADYCARDIA [None]
  - BLOOD UREA INCREASED [None]
  - BLOOD CREATININE INCREASED [None]
  - RENAL FAILURE ACUTE [None]
  - OXYGEN SATURATION DECREASED [None]
  - PROTHROMBIN TIME PROLONGED [None]
  - CHILLS [None]
  - CYANOSIS [None]
  - CARDIAC ARREST [None]
  - HAEMOPTYSIS [None]
  - COUGH [None]
  - HAEMORRHAGE [None]
  - RESPIRATORY ARREST [None]
  - BLOOD ALKALINE PHOSPHATASE INCREASED [None]
  - RHINITIS [None]
  - ENDOTRACHEAL INTUBATION [None]
  - SYNCOPE [None]
  - DEVICE RELATED SEPSIS [None]
  - HYPOXIA [None]
  - CHOLESTASIS [None]
  - FLUID OVERLOAD [None]
  - FACE INJURY [None]
  - PYREXIA [None]
  - INTERNATIONAL NORMALISED RATIO INCREASED [None]
  - FALL [None]
  - OXYGEN CONSUMPTION INCREASED [None]
  - MENTAL STATUS CHANGES [None]
  - ALANINE AMINOTRANSFERASE INCREASED [None]
  - BLOOD BILIRUBIN INCREASED [None]
  - ACTIVATED PARTIAL THROMBOPLASTIN TIME PROLONGED [None]
  - RESUSCITATION [None]
